FAERS Safety Report 6857336-4 (Version None)
Quarter: 2010Q3

REPORT INFORMATION
  Report Type: 
  Country: None (occurrence: None)
  Receive Date: 20100719
  Receipt Date: 20100617
  Transmission Date: 20110219
  Serious: No
  Sender: FDA-Public Use
  Company Number: US-BAYER-201026540NA

PATIENT
  Age: 30 Year
  Sex: Male

DRUGS (1)
  1. ULTRAVIST 300 [Suspect]
     Indication: COMPUTERISED TOMOGRAM THORAX
     Dosage: TOTAL DAILY DOSE: 50 ML
     Route: 042
     Dates: start: 20100615, end: 20100615

REACTIONS (3)
  - CHEST DISCOMFORT [None]
  - PRURITUS [None]
  - URTICARIA [None]
